FAERS Safety Report 19960814 (Version 1)
Quarter: 2021Q4

REPORT INFORMATION
  Report Type: Report from Study
  Country: None (occurrence: IL)
  Receive Date: 20211016
  Receipt Date: 20211016
  Transmission Date: 20220303
  Serious: Yes (Hospitalization)
  Sender: FDA-Public Use
  Company Number: IL-ABBVIE-21K-082-4118306-00

PATIENT
  Sex: Female

DRUGS (2)
  1. HUMIRA [Suspect]
     Active Substance: ADALIMUMAB
     Indication: Uveitis
     Route: 058
     Dates: start: 20191120, end: 2021
  2. HUMIRA [Suspect]
     Active Substance: ADALIMUMAB
     Route: 058
     Dates: start: 2021

REACTIONS (1)
  - Ovarian cyst [Recovered/Resolved]

NARRATIVE: CASE EVENT DATE: 20200101
